FAERS Safety Report 7665544-8 (Version None)
Quarter: 2011Q3

REPORT INFORMATION
  Report Type: 
  Country: None (occurrence: None)
  Receive Date: 20110806
  Receipt Date: 20110315
  Transmission Date: 20111222
  Serious: No
  Sender: FDA-Public Use
  Company Number: US-ABBOTT-11P-163-0711873-00

PATIENT
  Sex: Male
  Weight: 90.8 kg

DRUGS (8)
  1. CLONAZEPAM [Concomitant]
     Indication: ANXIETY
  2. NIASPAN [Suspect]
  3. NIASPAN [Suspect]
  4. ASPIRIN [Concomitant]
     Indication: PROPHYLAXIS
  5. ASPIRIN [Concomitant]
     Indication: FLUSHING
  6. NIASPAN [Suspect]
     Indication: ARTERIAL OCCLUSIVE DISEASE
  7. ATENOLOL [Concomitant]
     Indication: HYPERTENSION
  8. LISINOPRIL [Concomitant]
     Indication: HYPERTENSION

REACTIONS (2)
  - FLUSHING [None]
  - MUSCLE SPASMS [None]
